FAERS Safety Report 8936326 (Version 1)
Quarter: 2012Q4

REPORT INFORMATION
  Report Type: 
  Country: US (occurrence: US)
  Receive Date: 20121130
  Receipt Date: 20121130
  Transmission Date: 20130627
  Serious: No
  Sender: FDA-Public Use
  Company Number: US-PFIZER INC-2012300422

PATIENT
  Age: 66 Year
  Sex: Male
  Weight: 84.81 kg

DRUGS (2)
  1. LYRICA [Suspect]
     Indication: FIBROMYALGIA
     Dosage: 75 mg, UNK
     Route: 048
  2. LYRICA [Suspect]
     Indication: PAIN IN LEG
     Dosage: 300 mg, 2x/day
     Route: 048
     Dates: end: 201210

REACTIONS (2)
  - Drug ineffective [Unknown]
  - Limb discomfort [Unknown]
